FAERS Safety Report 7656548-X (Version None)
Quarter: 2011Q3

REPORT INFORMATION
  Report Type: 
  Country: None (occurrence: None)
  Receive Date: 20110804
  Receipt Date: 20110112
  Transmission Date: 20111222
  Serious: No
  Sender: FDA-Public Use
  Company Number: US-BAUSCH-2011BL000215

PATIENT
  Age: 60 Year
  Sex: Female

DRUGS (4)
  1. OPCON-A [Suspect]
     Indication: VISION BLURRED
     Route: 047
     Dates: start: 20110112
  2. OPCON-A [Suspect]
     Indication: OFF LABEL USE
     Route: 047
     Dates: start: 20110112
  3. OPCON-A [Suspect]
     Indication: EYE PRURITUS
     Route: 047
     Dates: start: 20110112
  4. OPCON-A [Suspect]
     Indication: OCULAR HYPERAEMIA
     Route: 047
     Dates: start: 20110112

REACTIONS (2)
  - INSTILLATION SITE PAIN [None]
  - MYDRIASIS [None]
